FAERS Safety Report 6687159-0 (Version None)
Quarter: 2010Q2

REPORT INFORMATION
  Report Type: 
  Country: None (occurrence: None)
  Receive Date: 20100416
  Receipt Date: 20100416
  Transmission Date: 20101027
  Serious: No
  Sender: FDA-Public Use
  Company Number: None

PATIENT
  Age: 35 Year
  Sex: Female

DRUGS (1)
  1. LEXISCAN [Suspect]
     Indication: CHEST PAIN
     Dosage: .4 MG IN 5 ML OVER 30 SEC IV PUSH
     Route: 042
     Dates: start: 20091217

REACTIONS (1)
  - VENTRICULAR TACHYCARDIA [None]
